FAERS Safety Report 8049001-5 (Version None)
Quarter: 2011Q4

REPORT INFORMATION
  Report Type: 
  Country: None (occurrence: None)
  Receive Date: 20111209
  Receipt Date: 20110902
  Transmission Date: 20120403
  Serious: No
  Sender: FDA-Public Use
  Company Number: 2011SP041913

PATIENT
  Age: 60 Year
  Sex: Male

DRUGS (9)
  1. MILK THISTLE [Concomitant]
  2. FISH OIL [Concomitant]
  3. PEGASYS [Suspect]
     Indication: HEPATITIS C
  4. PROCRIT [Concomitant]
  5. HYDROXYCHLOROQUINE SULFATE [Concomitant]
  6. VICTRELIS [Suspect]
     Indication: HEPATITIS C
     Dosage: 800 MG;TID; PO
     Route: 048
     Dates: start: 20110831
  7. ALPHA-LIPOIC ACID [Concomitant]
  8. RIBAVIRIN [Suspect]
     Indication: HEPATITIS C
  9. NEUPOGEN [Concomitant]

REACTIONS (1)
  - DYSGEUSIA [None]
